FAERS Safety Report 8624074-7 (Version None)
Quarter: 2012Q3

REPORT INFORMATION
  Report Type: 
  Country: None (occurrence: None)
  Receive Date: 20120827
  Receipt Date: 20120808
  Transmission Date: 20120928
  Serious: Yes (Other)
  Sender: FDA-Public Use
  Company Number: JP-009507513-1208JPN004781

PATIENT

DRUGS (19)
  1. PEG-INTRON [Suspect]
     Dosage: 100 MICROGRAM, QW
     Dates: start: 20120502, end: 20120502
  2. PEG-INTRON [Suspect]
     Dosage: 40 MICROGRAM, QW
     Route: 058
     Dates: start: 20120606, end: 20120620
  3. TELAVIC [Suspect]
     Indication: HEPATITIS C
     Dosage: 1.5 G, QD
     Route: 048
     Dates: start: 20120411, end: 20120414
  4. GLYCYRON [Concomitant]
     Indication: HEPATITIS C
     Dosage: 150 MG, QD
     Route: 048
     Dates: end: 20120509
  5. TALION (BEPOTASTINE BESYLATE) [Concomitant]
     Indication: PROPHYLAXIS
     Dosage: 20 MG, QD
     Route: 048
     Dates: start: 20120411, end: 20120627
  6. LOXONIN [Concomitant]
     Indication: PROPHYLAXIS
     Dosage: 60 MG PER DAY , PRN
     Route: 048
     Dates: start: 20120411, end: 20120516
  7. LOXONIN [Concomitant]
     Indication: PYREXIA
  8. PEG-INTRON [Suspect]
     Dosage: 50 MICROGRAM, QW
     Route: 058
     Dates: start: 20120418, end: 20120418
  9. REBETOL [Suspect]
     Indication: HEPATITIS C
     Dosage: 800 MG, QD
     Route: 048
     Dates: start: 20120411
  10. TELAVIC [Suspect]
     Dosage: 1.5 G, QD
     Route: 048
     Dates: end: 20120627
  11. URSO 250 [Concomitant]
     Indication: HEPATITIS C
     Dosage: 600 MG, QD
     Route: 048
     Dates: end: 20120509
  12. PEG-INTRON [Suspect]
     Indication: HEPATITIS C
     Dosage: 1.5 MICROGRAM PER KILOGRAM, QW
     Route: 058
     Dates: start: 20120411, end: 20120411
  13. PEG-INTRON [Suspect]
     Dosage: 30 MICROGRAM,
     Route: 058
     Dates: start: 20120627, end: 20120627
  14. TELAVIC [Suspect]
     Dosage: UNK
     Route: 048
     Dates: start: 20120417
  15. PEG-INTRON [Suspect]
     Dosage: 75 MICROGRAM, QW
     Route: 058
     Dates: start: 20120425, end: 20120425
  16. PEG-INTRON [Suspect]
     Dosage: 50 MICROGRAM, QW
     Route: 058
     Dates: start: 20120509, end: 20120530
  17. NEO-MINOPHAGEN C [Concomitant]
     Indication: HEPATITIS C
     Dosage: UNK
     Route: 042
  18. MOTILIUM [Concomitant]
     Indication: PROPHYLAXIS
     Dosage: 30 MG, QD
     Route: 048
     Dates: start: 20120411, end: 20120523
  19. PEG-INTRON [Suspect]
     Dosage: 40 MICROGRAM, UNK
     Route: 058
     Dates: start: 20120704

REACTIONS (1)
  - PLATELET COUNT DECREASED [None]
